FAERS Safety Report 20940080 (Version 2)
Quarter: 2022Q3

REPORT INFORMATION
  Report Type: Spontaneous
  Country: CA (occurrence: CA)
  Receive Date: 20220609
  Receipt Date: 20220714
  Transmission Date: 20221027
  Serious: Yes (Hospitalization)
  Sender: FDA-Public Use
  Company Number: CA-PFIZER INC-202101548766

PATIENT
  Age: 49 Year
  Sex: Female
  Weight: 64 kg

DRUGS (11)
  1. RUXIENCE [Suspect]
     Active Substance: RITUXIMAB-PVVR
     Indication: Rheumatoid arthritis
     Dosage: 1000 MG DAY 1 AND DAY 15
     Route: 042
     Dates: start: 20210319, end: 20210403
  2. RUXIENCE [Suspect]
     Active Substance: RITUXIMAB-PVVR
     Dosage: 1000 MG DAY 1 AND DAY 15
     Route: 042
     Dates: start: 20211108
  3. RUXIENCE [Suspect]
     Active Substance: RITUXIMAB-PVVR
     Dosage: 1000 MG DAY 1 AND DAY 15
     Route: 042
     Dates: start: 20211108, end: 20211122
  4. RUXIENCE [Suspect]
     Active Substance: RITUXIMAB-PVVR
     Dosage: 1000 MG DAY 1 AND DAY 15
     Route: 042
     Dates: start: 20211122, end: 20211122
  5. RUXIENCE [Suspect]
     Active Substance: RITUXIMAB-PVVR
     Dosage: 500MG DAY 1 AND DAY 15
     Route: 042
  6. RUXIENCE [Suspect]
     Active Substance: RITUXIMAB-PVVR
     Dosage: 500MG DAY 1 AND DAY 15
     Route: 042
     Dates: start: 20220603
  7. ACETAMINOPHEN [Concomitant]
     Active Substance: ACETAMINOPHEN
     Indication: Premedication
     Dosage: 650 MG
     Dates: start: 20211122, end: 20211122
  8. ACETAMINOPHEN [Concomitant]
     Active Substance: ACETAMINOPHEN
     Dosage: 650 MG
     Dates: start: 20220603, end: 20220603
  9. DIPHENHYDRAMINE [Concomitant]
     Active Substance: DIPHENHYDRAMINE
     Indication: Premedication
     Dosage: 50 MG
     Dates: start: 20211122, end: 20211122
  10. DIPHENHYDRAMINE [Concomitant]
     Active Substance: DIPHENHYDRAMINE
     Dosage: 50 MG
     Dates: start: 20220603, end: 20220603
  11. IRON [Concomitant]
     Active Substance: IRON
     Dosage: UNK

REACTIONS (5)
  - Renal impairment [Recovering/Resolving]
  - Anxiety [Unknown]
  - Off label use [Unknown]
  - Product use issue [Unknown]
  - Off label use [Unknown]

NARRATIVE: CASE EVENT DATE: 20211108
